FAERS Safety Report 20404274 (Version 1)
Quarter: 2022Q1

REPORT INFORMATION
  Report Type: Spontaneous
  Country: US (occurrence: US)
  Receive Date: 20220131
  Receipt Date: 20220131
  Transmission Date: 20220423
  Serious: Yes (Hospitalization)
  Sender: FDA-Public Use
  Company Number: US-BIOVITRUM-2021US11918

PATIENT
  Sex: Male

DRUGS (6)
  1. SYNAGIS [Suspect]
     Active Substance: PALIVIZUMAB
     Indication: Bronchopulmonary dysplasia
     Dosage: (100MG/1ML)
     Route: 030
     Dates: start: 202110
  2. SYNAGIS [Suspect]
     Active Substance: PALIVIZUMAB
     Indication: Bronchopulmonary dysplasia
     Dosage: (100MG/1ML)
     Route: 030
     Dates: start: 202110
  3. SYNAGIS [Suspect]
     Active Substance: PALIVIZUMAB
     Indication: Bronchopulmonary dysplasia
     Dosage: (50MG/0.5ML)
     Route: 030
     Dates: start: 202111
  4. SYNAGIS [Suspect]
     Active Substance: PALIVIZUMAB
     Indication: Bronchopulmonary dysplasia
     Dosage: (50MG/0.5ML)
     Route: 030
     Dates: start: 202111
  5. SYNAGIS [Suspect]
     Active Substance: PALIVIZUMAB
     Indication: Bronchopulmonary dysplasia
     Dosage: 1.04ML UNKNOWN
     Route: 030
  6. SYNAGIS [Suspect]
     Active Substance: PALIVIZUMAB
     Indication: Bronchopulmonary dysplasia
     Dosage: 1.04ML UNKNOWN
     Route: 030
     Dates: start: 202110

REACTIONS (1)
  - Respiratory syncytial virus infection [Recovering/Resolving]
